FAERS Safety Report 18376748 (Version 1)
Quarter: 2020Q4

REPORT INFORMATION
  Report Type: Spontaneous
  Country: US (occurrence: US)
  Receive Date: 20201012
  Receipt Date: 20201012
  Transmission Date: 20210114
  Serious: Yes (Other)
  Sender: FDA-Public Use
  Company Number: None

PATIENT
  Age: 35 Year
  Sex: Male
  Weight: 79.65 kg

DRUGS (2)
  1. DUPIXENT [Suspect]
     Active Substance: DUPILUMAB
     Indication: NASAL POLYPS
     Dosage: ?          OTHER FREQUENCY:EVERY 14 DAYS;?
     Route: 058
     Dates: start: 20200914, end: 20201012
  2. DUPIXENT [Concomitant]
     Active Substance: DUPILUMAB
     Dates: start: 20200914, end: 20201012

REACTIONS (3)
  - Haematoma [None]
  - Oropharyngeal discomfort [None]
  - Urticaria [None]

NARRATIVE: CASE EVENT DATE: 20200928
